FAERS Safety Report 20672130 (Version 7)
Quarter: 2022Q4

REPORT INFORMATION
  Report Type: Report from Study
  Country: US (occurrence: US)
  Receive Date: 20220405
  Receipt Date: 20221104
  Transmission Date: 20230113
  Serious: Yes (Hospitalization, Other)
  Sender: FDA-Public Use
  Company Number: US-ABBVIE-22K-163-4344367-00

PATIENT
  Sex: Male
  Weight: 61.234 kg

DRUGS (13)
  1. HUMIRA [Suspect]
     Active Substance: ADALIMUMAB
     Indication: Rheumatoid arthritis
     Route: 058
  2. HUMIRA [Suspect]
     Active Substance: ADALIMUMAB
     Indication: Uveitis
     Route: 058
  3. HUMIRA [Suspect]
     Active Substance: ADALIMUMAB
     Indication: Arthritis
     Route: 058
     Dates: start: 2017
  4. HUMIRA [Suspect]
     Active Substance: ADALIMUMAB
     Indication: Uveitis
  5. PREDNISOLONE ACETATE [Concomitant]
     Active Substance: PREDNISOLONE ACETATE
     Indication: Uveitis
     Dosage: 2 DROPS EACH EYE QD
  6. MODERNA COVID-19 VACCINE [Concomitant]
     Active Substance: ELASOMERAN
     Indication: COVID-19 immunisation
     Dosage: MODERNA, ONCE
     Route: 030
     Dates: start: 20210407, end: 20210407
  7. MODERNA COVID-19 VACCINE [Concomitant]
     Active Substance: ELASOMERAN
     Indication: COVID-19 immunisation
     Dosage: MODERNA, ONCE
     Route: 030
     Dates: start: 20210310, end: 20210310
  8. PANTOPRAZOLE [Concomitant]
     Active Substance: PANTOPRAZOLE
     Indication: Hyperchlorhydria
  9. SUCRALFATE [Concomitant]
     Active Substance: SUCRALFATE
     Indication: Gastric disorder
  10. SUCRALFATE [Concomitant]
     Active Substance: SUCRALFATE
     Indication: Gastric disorder
  11. DOPTELET [Concomitant]
     Active Substance: AVATROMBOPAG MALEATE
     Indication: Platelet count decreased
  12. PREDNISONE [Concomitant]
     Active Substance: PREDNISONE
     Indication: Product used for unknown indication
     Dosage: BOTH EYES 2X A DAY (PREDNISONE 1% EYE DROPS)
  13. PROCRIT [Concomitant]
     Active Substance: ERYTHROPOIETIN
     Indication: Blood disorder

REACTIONS (9)
  - Anaemia [Recovering/Resolving]
  - Asthenia [Recovered/Resolved]
  - Gastric haemorrhage [Unknown]
  - Myelodysplastic syndrome [Recovering/Resolving]
  - Tooth disorder [Unknown]
  - Arthralgia [Unknown]
  - Urinary tract infection [Recovered/Resolved]
  - Haemoglobin decreased [Recovering/Resolving]
  - Asthenia [Not Recovered/Not Resolved]

NARRATIVE: CASE EVENT DATE: 20180101
